FAERS Safety Report 7183361-2 (Version None)
Quarter: 2010Q4

REPORT INFORMATION
  Report Type: 
  Country: None (occurrence: None)
  Receive Date: 20101220
  Receipt Date: 20101220
  Transmission Date: 20110411
  Serious: Yes (Hospitalization)
  Sender: FDA-Public Use
  Company Number: None

PATIENT
  Age: 83 Year
  Sex: Female
  Weight: 68.3 kg

DRUGS (11)
  1. COUMADIN [Suspect]
     Indication: ATRIAL FIBRILLATION
     Dosage: 5 MG- 2.5 DAILY PO RECENT AND RECENT DECREASE TO 2.5MG
     Route: 048
  2. ENOXAPARIN SODIUM [Suspect]
     Indication: ATRIAL FIBRILLATION
     Dosage: 60 GM BID SQ RECENT
     Route: 058
  3. SENOKOT [Concomitant]
  4. BYSTOLIC [Concomitant]
  5. LISINOPRIL [Concomitant]
  6. SPIRIVA [Concomitant]
  7. APAP TAB [Concomitant]
  8. AMIODARONE [Concomitant]
  9. CARDIZEM CD [Concomitant]
  10. ALDACTONE [Concomitant]
  11. IMDUR [Concomitant]

REACTIONS (5)
  - ASTHENIA [None]
  - DYSPNOEA [None]
  - GASTROINTESTINAL ULCER HAEMORRHAGE [None]
  - HAEMATOCHEZIA [None]
  - POSTOPERATIVE WOUND COMPLICATION [None]
